FAERS Safety Report 5255467-6 (Version None)
Quarter: 2007Q1

REPORT INFORMATION
  Report Type: 
  Country: None (occurrence: None)
  Receive Date: 20061201
  Receipt Date: 20060901
  Transmission Date: 20070707
  Serious: No
  Sender: FDA-Public Use
  Company Number: 2006PV020598

PATIENT
  Age: 49 Year
  Sex: Female
  Weight: 88.4514 kg

DRUGS (7)
  1. BYETTA [Suspect]
     Indication: DIABETES MELLITUS NON-INSULIN-DEPENDENT
     Dosage: 5 MCG;BID;SC
     Route: 058
     Dates: start: 20060830
  2. HUMULIN 70/30 [Concomitant]
  3. VICODIN [Concomitant]
  4. PREVACID [Concomitant]
  5. ASPIRIN [Concomitant]
  6. HUMULIN N [Concomitant]
  7. GLUCOPHAGE [Concomitant]

REACTIONS (3)
  - BLOOD GLUCOSE INCREASED [None]
  - INJECTION SITE HAEMORRHAGE [None]
  - NAUSEA [None]
